FAERS Safety Report 6377122-1 (Version None)
Quarter: 2009Q3

REPORT INFORMATION
  Report Type: 
  Country: None (occurrence: None)
  Receive Date: 20090923
  Receipt Date: 20090923
  Transmission Date: 20100115
  Serious: Yes (Other)
  Sender: FDA-Public Use
  Company Number: None

PATIENT
  Sex: Female
  Weight: 56.246 kg

DRUGS (2)
  1. MICARDIS [Suspect]
     Indication: HYPERTENSION
     Dosage: MICARDIS 80MG QD PO
     Route: 048
     Dates: start: 20090904, end: 20090907
  2. LEVOTHYROXINE SODIUM [Concomitant]

REACTIONS (1)
  - RASH [None]
